FAERS Safety Report 24669622 (Version 1)
Quarter: 2024Q4

REPORT INFORMATION
  Report Type: Spontaneous
  Country: US (occurrence: US)
  Receive Date: 20241127
  Receipt Date: 20241127
  Transmission Date: 20250115
  Serious: No
  Sender: TARO
  Company Number: US-TARO PHARMACEUTICALS USA INC.-2024TAR00442

PATIENT

DRUGS (1)
  1. CARBAMAZEPINE [Suspect]
     Active Substance: CARBAMAZEPINE
     Indication: Seizure
     Dosage: UNK, TID, 2 TAB OF 200 MG 3 TIMES A DAY
     Route: 048
     Dates: start: 20240310, end: 20240311

REACTIONS (2)
  - Abdominal discomfort [Recovering/Resolving]
  - Parosmia [Recovering/Resolving]
